FAERS Safety Report 20477571 (Version 2)
Quarter: 2022Q3

REPORT INFORMATION
  Report Type: Spontaneous
  Country: US (occurrence: US)
  Receive Date: 20220216
  Receipt Date: 20220705
  Transmission Date: 20221027
  Serious: Yes (Death)
  Sender: FDA-Public Use
  Company Number: US-PROCTER_AND_GAMBLE-PH22001446

PATIENT
  Sex: Male

DRUGS (1)
  1. VICKS VAPORUB [Suspect]
     Active Substance: CAMPHOR (SYNTHETIC)\EUCALYPTUS OIL\MENTHOL
     Dosage: UNK
     Route: 048

REACTIONS (3)
  - Death [Fatal]
  - Incorrect route of product administration [Unknown]
  - Exposure via ingestion [Unknown]
